FAERS Safety Report 13832050 (Version 1)
Quarter: 2017Q3

REPORT INFORMATION
  Report Type: Spontaneous
  Country: US (occurrence: US)
  Receive Date: 20170803
  Receipt Date: 20170803
  Transmission Date: 20171127
  Serious: No
  Sender: FDA-Public Use
  Company Number: US-ROCHE-675859

PATIENT
  Age: 76 Year
  Sex: Female
  Weight: 62.1 kg

DRUGS (4)
  1. BONIVA [Suspect]
     Active Substance: IBANDRONATE SODIUM
     Indication: OSTEOPOROSIS
     Route: 048
     Dates: start: 20090330, end: 20091125
  2. BONIVA [Suspect]
     Active Substance: IBANDRONATE SODIUM
     Route: 048
  3. SERTRALINE [Concomitant]
     Active Substance: SERTRALINE HYDROCHLORIDE
     Indication: DEPRESSION
     Route: 048
  4. FOSAMAX [Suspect]
     Active Substance: ALENDRONATE SODIUM
     Indication: PRODUCT USED FOR UNKNOWN INDICATION
     Route: 048

REACTIONS (2)
  - Gingival discomfort [Recovered/Resolved]
  - Gingival pain [Not Recovered/Not Resolved]

NARRATIVE: CASE EVENT DATE: 20091222
